FAERS Safety Report 16400140 (Version 1)
Quarter: 2019Q2

REPORT INFORMATION
  Report Type: Spontaneous
  Country: US (occurrence: US)
  Receive Date: 20190606
  Receipt Date: 20190606
  Transmission Date: 20190711
  Serious: No
  Sender: FDA-Public Use
  Company Number: US-ALLERGAN-1914349US

PATIENT
  Age: 43 Year
  Sex: Female

DRUGS (3)
  1. KYBELLA [Suspect]
     Active Substance: DEOXYCHOLIC ACID
     Indication: FAT TISSUE INCREASED
     Dosage: 0.2 ML, SINGLE
     Dates: start: 20181015, end: 20181015
  2. KYBELLA [Suspect]
     Active Substance: DEOXYCHOLIC ACID
     Dosage: 0.2 ML, SINGLE
     Route: 058
     Dates: start: 20180725, end: 20180725
  3. LEXAPRO [Concomitant]
     Active Substance: ESCITALOPRAM OXALATE
     Indication: PRODUCT USED FOR UNKNOWN INDICATION
     Dosage: 10 MG, QD
     Route: 065

REACTIONS (1)
  - Injection site indentation [Not Recovered/Not Resolved]

NARRATIVE: CASE EVENT DATE: 20181028
